FAERS Safety Report 5147176-9 (Version None)
Quarter: 2006Q4

REPORT INFORMATION
  Report Type: 
  Country: None (occurrence: None)
  Receive Date: 20061103
  Receipt Date: 20061026
  Transmission Date: 20070319
  Serious: Yes (Other)
  Sender: FDA-Public Use
  Company Number: HQWYE404129SEP06

PATIENT
  Age: 82 Year
  Sex: Male

DRUGS (6)
  1. CORDAREX (AMIODARONE, TABLET) [Suspect]
     Indication: ATRIAL FIBRILLATION
     Dosage: 200 MG 1X PER 1 DAY, ORAL
     Route: 048
     Dates: start: 20060910
  2. BLOPRESS (CANDESARTAN CILEXETIL) [Concomitant]
  3. BELOC-ZOC FORTE (METOPROLOL SUCCINATE) [Concomitant]
  4. ESIDRIX [Concomitant]
  5. RAMIPRIL [Concomitant]
  6. MARCUMAR [Concomitant]

REACTIONS (3)
  - DIARRHOEA [None]
  - GASTROINTESTINAL INFECTION [None]
  - PANCREATIC INSUFFICIENCY [None]
